FAERS Safety Report 6704940-X (Version None)
Quarter: 2010Q2

REPORT INFORMATION
  Report Type: 
  Country: None (occurrence: None)
  Receive Date: 20100430
  Receipt Date: 20091211
  Transmission Date: 20101027
  Serious: No
  Sender: FDA-Public Use
  Company Number: US-ASTRAZENECA-2009SE31556

PATIENT
  Age: 76 Year
  Sex: Female
  Weight: 72.1 kg

DRUGS (12)
  1. NEXIUM [Suspect]
     Indication: FLATULENCE
     Route: 048
     Dates: start: 20091204, end: 20091211
  2. SYNTHROID [Concomitant]
  3. PLAQUENIL [Concomitant]
  4. LEXAPRO [Concomitant]
  5. TRAMADOL HCL [Concomitant]
  6. COUMADIN [Concomitant]
  7. PROPAFENONE HCL [Concomitant]
  8. ORENCIA [Concomitant]
  9. METANX [Concomitant]
  10. NORVASC [Concomitant]
  11. MIRTAZAPRNE [Concomitant]
  12. ARABIA [Concomitant]

REACTIONS (3)
  - DRY MOUTH [None]
  - HYPOAESTHESIA [None]
  - TONGUE DISORDER [None]
